FAERS Safety Report 15400963 (Version 2)
Quarter: 2018Q3

REPORT INFORMATION
  Report Type: Report from Study
  Country: US (occurrence: US)
  Receive Date: 20180919
  Receipt Date: 20180924
  Transmission Date: 20181010
  Serious: Yes (Hospitalization, Other)
  Sender: FDA-Public Use
  Company Number: US-JNJFOC-20180822909

PATIENT
  Age: 76 Year
  Sex: Female

DRUGS (10)
  1. METFORMIN [Concomitant]
     Active Substance: METFORMIN HYDROCHLORIDE
  2. IMBRUVICA [Suspect]
     Active Substance: IBRUTINIB
     Indication: CHRONIC LYMPHOCYTIC LEUKAEMIA
     Route: 048
     Dates: start: 20140802
  3. OMEPRAZOLE. [Concomitant]
     Active Substance: OMEPRAZOLE
  4. ROPINIROLE. [Concomitant]
     Active Substance: ROPINIROLE
  5. LEVOTHYROXIN [Concomitant]
     Active Substance: LEVOTHYROXINE
  6. IPRATROPIUM/ALBUTEROL [Concomitant]
     Active Substance: ALBUTEROL\IPRATROPIUM
  7. LOSARTAN. [Concomitant]
     Active Substance: LOSARTAN
  8. BUDESONIDE. [Concomitant]
     Active Substance: BUDESONIDE
  9. BABY ASPIRIN [Concomitant]
     Active Substance: ASPIRIN
  10. IMBRUVICA [Suspect]
     Active Substance: IBRUTINIB
     Indication: CHRONIC LYMPHOCYTIC LEUKAEMIA
     Route: 048
     Dates: start: 20151212

REACTIONS (8)
  - Nephrolithiasis [Unknown]
  - Muscle spasms [Unknown]
  - Generalised oedema [Unknown]
  - Candida infection [Unknown]
  - Cystitis [Unknown]
  - Device breakage [Unknown]
  - Escherichia sepsis [Recovering/Resolving]
  - Pyelonephritis [Recovering/Resolving]

NARRATIVE: CASE EVENT DATE: 20180706
